FAERS Safety Report 7672130-2 (Version None)
Quarter: 2011Q3

REPORT INFORMATION
  Report Type: 
  Country: None (occurrence: None)
  Receive Date: 20110809
  Receipt Date: 20110727
  Transmission Date: 20111222
  Serious: Yes (Hospitalization)
  Sender: FDA-Public Use
  Company Number: CH-PFIZER INC-2011176202

PATIENT
  Age: 48 Year
  Sex: Male
  Weight: 85 kg

DRUGS (4)
  1. PANTOPRAZOLE [Suspect]
     Dosage: UNK
     Route: 048
     Dates: end: 20110719
  2. CORDARONE [Suspect]
     Indication: ATRIAL FIBRILLATION
     Dosage: UNK
     Route: 048
     Dates: end: 20110719
  3. CORDARONE [Suspect]
     Indication: ATRIAL FLUTTER
  4. AUGMENTIN '125' [Suspect]
     Indication: PROPHYLAXIS
     Dosage: 1.2 G, 3X/DAY
     Route: 041
     Dates: start: 20110523, end: 20110525

REACTIONS (1)
  - CHOLESTATIC LIVER INJURY [None]
